FAERS Safety Report 5101144-1 (Version None)
Quarter: 2006Q3

REPORT INFORMATION
  Report Type: 
  Country: None (occurrence: None)
  Receive Date: 20060911
  Receipt Date: 20060811
  Transmission Date: 20061208
  Serious: Yes (Hospitalization, Other)
  Sender: FDA-Public Use
  Company Number: PHBS2006JP12216

PATIENT
  Age: 66 Year
  Sex: Male

DRUGS (4)
  1. TEGRETOL [Suspect]
     Indication: BIPOLAR DISORDER
     Dosage: 400 MG/DAY
     Route: 048
     Dates: start: 20060801, end: 20060808
  2. TEGRETOL [Suspect]
     Dosage: 800 MG/DAY
     Route: 048
     Dates: start: 20060809, end: 20060810
  3. TEGRETOL [Suspect]
     Route: 048
     Dates: start: 20060811
  4. ADALAT [Concomitant]
     Dosage: 20 MG/DAY
     Route: 048
     Dates: start: 20060801

REACTIONS (4)
  - ABDOMINAL DISCOMFORT [None]
  - BLADDER CATHETERISATION [None]
  - BLOOD PRESSURE INCREASED [None]
  - DYSURIA [None]
